FAERS Safety Report 4407401-6 (Version None)
Quarter: 2004Q3

REPORT INFORMATION
  Report Type: 
  Country: None (occurrence: None)
  Receive Date: 20040723
  Receipt Date: 20040723
  Transmission Date: 20050211
  Serious: Yes (Hospitalization)
  Sender: FDA-Public Use
  Company Number: None

PATIENT
  Weight: 60.782 kg

DRUGS (4)
  1. FOSINOPRIL SODIUM [Suspect]
     Indication: NEPHROPATHY
     Dosage: 20 MG 1/2 TAB PO QD
     Route: 048
     Dates: start: 20040614
  2. GATIFLOXACIN [Concomitant]
  3. GLIPIZIDE [Concomitant]
  4. TRAZODONE HCL [Concomitant]

REACTIONS (3)
  - HYPERKALAEMIA [None]
  - HYPOVOLAEMIA [None]
  - RENAL FAILURE ACUTE [None]
